FAERS Safety Report 6453454-3 (Version None)
Quarter: 2009Q4

REPORT INFORMATION
  Report Type: 
  Country: None (occurrence: None)
  Receive Date: 20091124
  Receipt Date: 20091116
  Transmission Date: 20100525
  Serious: Yes (Other)
  Sender: FDA-Public Use
  Company Number: GB-JNJFOC-20091104830

PATIENT
  Age: 45 Year
  Sex: Female
  Weight: 110 kg

DRUGS (4)
  1. REMICADE [Suspect]
     Dosage: DOSE: ^200^
     Route: 042
     Dates: start: 20021004
  2. REMICADE [Suspect]
     Indication: RHEUMATOID ARTHRITIS
     Dosage: DOSE: ^200^
     Route: 042
     Dates: start: 20021004
  3. METHOTREXATE [Concomitant]
  4. IBUPROFEN [Concomitant]

REACTIONS (1)
  - HERPES ZOSTER [None]
